FAERS Safety Report 6082572-7 (Version None)
Quarter: 2009Q1

REPORT INFORMATION
  Report Type: 
  Country: None (occurrence: None)
  Receive Date: 20090218
  Receipt Date: 20090206
  Transmission Date: 20090719
  Serious: Yes (Hospitalization)
  Sender: FDA-Public Use
  Company Number: FR-PFIZER INC-2009168265

PATIENT

DRUGS (7)
  1. MEDROL [Suspect]
     Indication: PNEUMOCYSTIS JIROVECI PNEUMONIA
     Route: 048
     Dates: start: 20081210, end: 20081231
  2. TRUVADA [Suspect]
     Indication: ANTIRETROVIRAL THERAPY
     Route: 048
     Dates: start: 20081216, end: 20090102
  3. REYATAZ [Suspect]
     Indication: ANTIRETROVIRAL THERAPY
     Route: 048
     Dates: start: 20081216, end: 20090102
  4. NORVIR [Suspect]
     Indication: ANTIRETROVIRAL THERAPY
     Route: 048
     Dates: start: 20081216, end: 20090102
  5. BACTRIM [Suspect]
     Indication: PNEUMOCYSTIS JIROVECI PNEUMONIA
     Route: 048
     Dates: start: 20081206, end: 20090102
  6. IMOVANE [Suspect]
     Route: 048
     Dates: start: 20081218, end: 20081231
  7. ATARAX [Concomitant]
     Dates: start: 20081216, end: 20081224

REACTIONS (4)
  - ARTHRALGIA [None]
  - MYALGIA [None]
  - NEUROPATHY PERIPHERAL [None]
  - PYREXIA [None]
